FAERS Safety Report 5509837-9 (Version None)
Quarter: 2007Q4

REPORT INFORMATION
  Report Type: 
  Country: None (occurrence: None)
  Receive Date: 20071030
  Receipt Date: 20061108
  Transmission Date: 20080405
  Serious: Yes (Other)
  Sender: FDA-Public Use
  Company Number: HQWYE986109NOV06

PATIENT
  Age: 39 Year
  Sex: Female

DRUGS (3)
  1. PREMARIN [Suspect]
     Indication: MENOPAUSE
     Dosage: LOW DOSE UNKNOWN, ORAL
     Route: 048
     Dates: start: 20000101
  2. FOSAMAX [Concomitant]
  3. DETROL [Concomitant]

REACTIONS (1)
  - THROMBOSIS [None]
